FAERS Safety Report 7199914-1 (Version None)
Quarter: 2010Q4

REPORT INFORMATION
  Report Type: 
  Country: None (occurrence: None)
  Receive Date: 20101228
  Receipt Date: 20101216
  Transmission Date: 20110411
  Serious: No
  Sender: FDA-Public Use
  Company Number: US-PFIZER INC-2010173793

PATIENT
  Age: 23 Year
  Sex: Female
  Weight: 74.83 kg

DRUGS (1)
  1. PRISTIQ [Suspect]
     Indication: BIPOLAR I DISORDER
     Dosage: 50 MG, 1X/DAY
     Dates: start: 20100101

REACTIONS (1)
  - DRUG SCREEN FALSE POSITIVE [None]
